FAERS Safety Report 14471214 (Version 1)
Quarter: 2018Q1

REPORT INFORMATION
  Report Type: Spontaneous
  Country: FR (occurrence: FR)
  Receive Date: 20180131
  Receipt Date: 20180131
  Transmission Date: 20180509
  Serious: Yes (Death)
  Sender: FDA-Public Use
  Company Number: FR-ASTRAZENECA-2018SE10169

PATIENT
  Age: 1 Month
  Sex: Female

DRUGS (16)
  1. VOGALENE [Suspect]
     Active Substance: METOPIMAZINE
     Indication: NAUSEA
     Route: 064
     Dates: start: 201406, end: 201409
  2. KETOPROFEN. [Suspect]
     Active Substance: KETOPROFEN
     Indication: SPINAL PAIN
     Route: 064
     Dates: start: 201401, end: 201404
  3. ACETYLCYSTEINE. [Suspect]
     Active Substance: ACETYLCYSTEINE
     Indication: BRONCHITIS
     Route: 064
     Dates: start: 20140825
  4. ANAFRANIL [Suspect]
     Active Substance: CLOMIPRAMINE HYDROCHLORIDE
     Indication: DEPRESSION
     Route: 064
  5. SPASFON LYOC [Suspect]
     Active Substance: PHLOROGLUCINOL
     Indication: DYSPEPSIA
     Route: 064
     Dates: start: 201406, end: 201407
  6. AMOXICILLIN TRIHYDRATE [Suspect]
     Active Substance: AMOXICILLIN
     Indication: ASTHMA
     Route: 064
     Dates: start: 20140827
  7. KLIPAL CODEINE [Suspect]
     Active Substance: ACETAMINOPHEN\CODEINE PHOSPHATE
     Indication: SPINAL PAIN
     Dosage: 600 MG/50 MG UNKNOWN
     Route: 064
     Dates: start: 20140203, end: 20150104
  8. PIVALONE (TIXOCORTOL PIVALATE) [Suspect]
     Active Substance: TIXOCORTOL PIVALATE
     Indication: RHINITIS
     Route: 064
     Dates: start: 20141212
  9. CARBOCISTEINE [Suspect]
     Active Substance: CARBOCYSTEINE
     Indication: BRONCHITIS
     Route: 064
     Dates: start: 20141212, end: 20141216
  10. UVESTEROL D [Suspect]
     Active Substance: ERGOCALCIFEROL
     Indication: PROPHYLAXIS
     Route: 048
  11. SERETIDE [Suspect]
     Active Substance: FLUTICASONE PROPIONATE\SALMETEROL XINAFOATE
     Indication: ASTHMA
     Route: 064
     Dates: start: 20140825
  12. MACROGOL [Suspect]
     Active Substance: POLYETHYLENE GLYCOLS
     Indication: CONSTIPATION
     Route: 064
     Dates: start: 201406
  13. OMEPRAZOLE. [Suspect]
     Active Substance: OMEPRAZOLE
     Indication: GASTROOESOPHAGEAL REFLUX DISEASE
     Route: 064
     Dates: start: 20140920
  14. BROMAZEPAM [Suspect]
     Active Substance: BROMAZEPAM
     Indication: ANXIETY
     Route: 064
  15. NECYRANE [Suspect]
     Active Substance: RITIOMETAN
     Indication: NASOPHARYNGITIS
     Route: 064
     Dates: start: 20140825
  16. IMODIUM [Suspect]
     Active Substance: LOPERAMIDE HYDROCHLORIDE
     Indication: DIARRHOEA
     Route: 064
     Dates: start: 20141212

REACTIONS (1)
  - Death [Fatal]

NARRATIVE: CASE EVENT DATE: 20150303
